FAERS Safety Report 7525935-2 (Version None)
Quarter: 2011Q2

REPORT INFORMATION
  Report Type: 
  Country: None (occurrence: None)
  Receive Date: 20110606
  Receipt Date: 20110524
  Transmission Date: 20111010
  Serious: Yes (Other)
  Sender: FDA-Public Use
  Company Number: GB-JNJFOC-20110601480

PATIENT
  Age: 47 Year
  Sex: Male

DRUGS (3)
  1. AMITRIPTYLINE HCL [Suspect]
     Indication: DEPRESSION
     Route: 065
  2. RISPERIDONE [Suspect]
     Indication: DEPRESSION
     Route: 065
  3. FLUOXETINE HCL [Suspect]
     Indication: DEPRESSION
     Route: 065

REACTIONS (1)
  - PITUITARY TUMOUR BENIGN [None]
